FAERS Safety Report 14019962 (Version 1)
Quarter: 2017Q3

REPORT INFORMATION
  Report Type: Spontaneous
  Country: US (occurrence: US)
  Receive Date: 20170928
  Receipt Date: 20170928
  Transmission Date: 20171128
  Serious: No
  Sender: FDA-Public Use
  Company Number: US-ALLERGAN-1735262US

PATIENT
  Age: 54 Year
  Sex: Female

DRUGS (7)
  1. VRAYLAR [Suspect]
     Active Substance: CARIPRAZINE
     Indication: PRODUCT USED FOR UNKNOWN INDICATION
     Dosage: 1.5 MG, UNK
     Route: 048
     Dates: start: 20170208
  2. ABILIFY [Concomitant]
     Active Substance: ARIPIPRAZOLE
     Indication: PRODUCT USED FOR UNKNOWN INDICATION
     Route: 065
  3. VRAYLAR [Suspect]
     Active Substance: CARIPRAZINE
     Dosage: 4.5 MG, UNK
     Route: 065
     Dates: start: 20170711
  4. INVEGA [Concomitant]
     Active Substance: PALIPERIDONE
     Indication: PRODUCT USED FOR UNKNOWN INDICATION
     Route: 065
  5. VRAYLAR [Suspect]
     Active Substance: CARIPRAZINE
     Dosage: 3 MG, UNK
     Route: 065
     Dates: start: 20170310
  6. VRAYLAR [Suspect]
     Active Substance: CARIPRAZINE
     Dosage: 6 MG, UNK
     Route: 065
     Dates: start: 20170629
  7. VRAYLAR [Suspect]
     Active Substance: CARIPRAZINE
     Dosage: 3 MG, UNK
     Route: 065
     Dates: start: 20170810

REACTIONS (4)
  - Diarrhoea [Recovered/Resolved]
  - Delusion [Not Recovered/Not Resolved]
  - Drug ineffective [Unknown]
  - Dyskinesia [Recovered/Resolved]

NARRATIVE: CASE EVENT DATE: 201702
